FAERS Safety Report 7937155-8 (Version None)
Quarter: 2011Q4

REPORT INFORMATION
  Report Type: 
  Country: None (occurrence: None)
  Receive Date: 20111123
  Receipt Date: 20111111
  Transmission Date: 20120403
  Serious: Yes (Hospitalization, Disabling)
  Sender: FDA-Public Use
  Company Number: DK-SANOFI-AVENTIS-2011SA064423

PATIENT
  Age: 63 Year
  Sex: Female

DRUGS (3)
  1. GLIMEPIRIDE [Suspect]
     Dosage: TREATMENT START DATE : 11 JULY (YEAR NOT STATED)
     Route: 065
  2. METFORMIN HCL [Suspect]
     Dosage: TREATMENT START DATE : 11 JULY (YEAR NOT STATED)
     Route: 065
  3. GALVUS [Suspect]
     Route: 065
     Dates: start: 20101122, end: 20111003

REACTIONS (2)
  - VENTRICULAR FIBRILLATION [None]
  - TACHYCARDIA [None]
